FAERS Safety Report 9352205 (Version 2)
Quarter: 2013Q3

REPORT INFORMATION
  Report Type: Spontaneous
  Country: US (occurrence: US)
  Receive Date: 20130617
  Receipt Date: 20130702
  Transmission Date: 20140515
  Serious: Yes (Death, Other)
  Sender: FDA-Public Use
  Company Number: US-ABBOTT-13P-163-1105160-00

PATIENT
  Age: 23 Year
  Sex: Male

DRUGS (1)
  1. CREON [Suspect]
     Indication: CYSTIC FIBROSIS
     Dates: end: 20121003

REACTIONS (3)
  - Malabsorption [Fatal]
  - Lung disorder [Unknown]
  - Malaise [Unknown]
